FAERS Safety Report 7803268-4 (Version None)
Quarter: 2011Q4

REPORT INFORMATION
  Report Type: 
  Country: None (occurrence: None)
  Receive Date: 20111007
  Receipt Date: 20110929
  Transmission Date: 20120403
  Serious: Yes (Hospitalization)
  Sender: FDA-Public Use
  Company Number: PHHY2011DK87309

PATIENT
  Age: 49 Year
  Sex: Female

DRUGS (12)
  1. ASPIRIN [Suspect]
     Dosage: 75 MG, QD
     Route: 048
     Dates: start: 20110903, end: 20110922
  2. AGRYLIN [Suspect]
     Dosage: 0.5 MG, BID
     Route: 048
     Dates: start: 20081113
  3. AGRYLIN [Suspect]
     Dosage: 0.5 MG, TID
     Route: 048
     Dates: start: 20090226, end: 20110914
  4. HYDROXYUREA [Concomitant]
     Dosage: 500 MG, UNK
     Route: 048
     Dates: start: 20110914
  5. ASPIRIN [Suspect]
     Dosage: 0.5 MG, QD
     Route: 048
     Dates: start: 20080825
  6. HYDROXYUREA [Concomitant]
     Dosage: 750 MG, UNK
     Route: 048
     Dates: start: 20110922
  7. ASPIRIN [Suspect]
     Dosage: 75 MG, BID
     Route: 048
     Dates: start: 20090226
  8. ASPIRIN [Suspect]
     Dosage: 75 MG, QD
     Route: 048
     Dates: start: 20110501, end: 20110901
  9. ANAGRELIDE HYDROCHLORIDE [Suspect]
     Dosage: 0.5 MG, QD
     Route: 048
     Dates: start: 20080911
  10. ANAGRELIDE HYDROCHLORIDE [Suspect]
     Dosage: 0.5 MG, BID
     Route: 048
     Dates: start: 20081113
  11. ANAGRELIDE HYDROCHLORIDE [Suspect]
     Dosage: 0.5 MG, TID
     Route: 048
     Dates: start: 20090226, end: 20110914
  12. AGRYLIN [Suspect]
     Dosage: 0.5 MG, QD
     Route: 048
     Dates: start: 20080912

REACTIONS (5)
  - HAEMATOCHEZIA [None]
  - HIATUS HERNIA [None]
  - GASTROINTESTINAL HAEMORRHAGE [None]
  - MUCOUS STOOLS [None]
  - HAEMATEMESIS [None]
